FAERS Safety Report 25933338 (Version 1)
Quarter: 2025Q4

REPORT INFORMATION
  Report Type: Spontaneous
  Country: GB (occurrence: GB)
  Receive Date: 20251017
  Receipt Date: 20251017
  Transmission Date: 20260117
  Serious: Yes (Other)
  Sender: ACCORD
  Company Number: None

PATIENT
  Age: 33 Year
  Sex: Female

DRUGS (1)
  1. AMITRIPTYLINE [Suspect]
     Active Substance: AMITRIPTYLINE
     Indication: Adverse drug reaction
     Dosage: 10 MG AT NIGHT
     Dates: start: 20251002, end: 20251005

REACTIONS (3)
  - Dry mouth [Recovering/Resolving]
  - Lip swelling [Recovering/Resolving]
  - Angioedema [Recovering/Resolving]
